FAERS Safety Report 19630201 (Version 2)
Quarter: 2021Q3

REPORT INFORMATION
  Report Type: Spontaneous
  Country: US (occurrence: US)
  Receive Date: 20210728
  Receipt Date: 20210805
  Transmission Date: 20211014
  Serious: Yes (Other)
  Sender: FDA-Public Use
  Company Number: US-PFIZER INC-2021893441

PATIENT
  Age: 67 Year
  Sex: Male
  Weight: 108.86 kg

DRUGS (3)
  1. INLYTA [Suspect]
     Active Substance: AXITINIB
     Indication: RENAL CELL CARCINOMA
     Dosage: 5 MG, 2X/DAY (5 MG TWICE A DAY, ONCE IN MORNING AND ONCE IN EVENING)
  2. DIPHENOXYLATE [Suspect]
     Active Substance: DIPHENOXYLATE
     Dosage: UNK
  3. OXYCODONE [Suspect]
     Active Substance: OXYCODONE
     Dosage: UNK

REACTIONS (2)
  - Electrocardiogram QT interval abnormal [Unknown]
  - Myocardial infarction [Unknown]
